FAERS Safety Report 5917390-0 (Version None)
Quarter: 2008Q4

REPORT INFORMATION
  Report Type: 
  Country: None (occurrence: None)
  Receive Date: 20081014
  Receipt Date: 20081009
  Transmission Date: 20090506
  Serious: Yes (Other)
  Sender: FDA-Public Use
  Company Number: A0751120A

PATIENT
  Age: 7 Year
  Sex: Male

DRUGS (5)
  1. ADVAIR DISKUS 100/50 [Suspect]
     Indication: ASTHMA
     Route: 055
     Dates: start: 20050101
  2. SINGULAIR [Concomitant]
  3. ZYRTEC [Concomitant]
  4. PREDNISONE [Concomitant]
  5. XOPENEX [Concomitant]

REACTIONS (7)
  - ABNORMAL BEHAVIOUR [None]
  - AGGRESSION [None]
  - AGITATION [None]
  - BLOOD URINE PRESENT [None]
  - DISTURBANCE IN ATTENTION [None]
  - IRRITABILITY [None]
  - NEPHROLITHIASIS [None]
